FAERS Safety Report 6782606-8 (Version None)
Quarter: 2010Q2

REPORT INFORMATION
  Report Type: 
  Country: None (occurrence: None)
  Receive Date: 20100621
  Receipt Date: 20100607
  Transmission Date: 20101027
  Serious: Yes (Hospitalization)
  Sender: FDA-Public Use
  Company Number: US-BAYER-200942331NA

PATIENT
  Age: 64 Year
  Sex: Male

DRUGS (4)
  1. NEXAVAR [Suspect]
     Indication: RENAL CELL CARCINOMA
     Dosage: TOTAL DAILY DOSE: 800 MG  UNIT DOSE: 200 MG
     Route: 048
     Dates: start: 20091117, end: 20091130
  2. NEXAVAR [Suspect]
     Dosage: AS USED: 400-200 MG  UNIT DOSE: 200 MG
     Route: 048
     Dates: start: 20091205, end: 20091201
  3. MOISTURIZE [Concomitant]
  4. EPSOM SALTS [Concomitant]
     Dosage: SOAKS

REACTIONS (6)
  - BLISTER [None]
  - CARDIAC DISORDER [None]
  - CORONARY ARTERY THROMBOSIS [None]
  - DYSPNOEA [None]
  - NAUSEA [None]
  - PNEUMONIA [None]
